FAERS Safety Report 16781032 (Version 1)
Quarter: 2019Q3

REPORT INFORMATION
  Report Type: Spontaneous
  Country: AR (occurrence: AR)
  Receive Date: 20190906
  Receipt Date: 20190906
  Transmission Date: 20191005
  Serious: Yes (Hospitalization)
  Sender: FDA-Public Use
  Company Number: AR-PFIZER INC-2019382157

PATIENT
  Age: 13 Year
  Sex: Male

DRUGS (1)
  1. GENOTROPIN [Suspect]
     Active Substance: SOMATROPIN
     Indication: FOETAL GROWTH RESTRICTION
     Dosage: 1 TO 1.4 MG, 7 TIMES PER WEEK
     Dates: start: 20140904

REACTIONS (1)
  - Appendix disorder [Recovering/Resolving]

NARRATIVE: CASE EVENT DATE: 20190826
